FAERS Safety Report 23840834 (Version 1)
Quarter: 2024Q2

REPORT INFORMATION
  Report Type: Spontaneous
  Country: US (occurrence: US)
  Receive Date: 20240510
  Receipt Date: 20240510
  Transmission Date: 20240716
  Serious: No
  Sender: FDA-Public Use
  Company Number: US-COHERUS BIOSCIENCES Inc 2024-COH-US000274

PATIENT

DRUGS (6)
  1. CIMERLI [Suspect]
     Active Substance: RANIBIZUMAB-EQRN
     Indication: Retinal vein occlusion
     Dosage: UNK
     Dates: start: 202303
  2. CIMERLI [Suspect]
     Active Substance: RANIBIZUMAB-EQRN
     Indication: Macular oedema
     Dosage: UNK
  3. CIMERLI [Suspect]
     Active Substance: RANIBIZUMAB-EQRN
     Dosage: UNK
  4. AVASTIN [Concomitant]
     Active Substance: BEVACIZUMAB
  5. LUCENTIS [Concomitant]
     Active Substance: RANIBIZUMAB
  6. EYLEA [Concomitant]
     Active Substance: AFLIBERCEPT

REACTIONS (1)
  - Photophobia [Unknown]

NARRATIVE: CASE EVENT DATE: 20240201
